FAERS Safety Report 9915916 (Version 2)
Quarter: 2014Q1

REPORT INFORMATION
  Report Type: Spontaneous
  Country: US (occurrence: None)
  Receive Date: 20140219
  Receipt Date: 20140224
  Transmission Date: 20141002
  Serious: Yes (Life-Threatening, Hospitalization, Other)
  Sender: FDA-Public Use
  Company Number: AUR-APL-2014-01762

PATIENT
  Age: 53 Year
  Sex: Male

DRUGS (6)
  1. AMOXICILLIN+CLAVULANIC ACID (CLAVULANIC ACID, AMOXICILLIN) [Suspect]
     Indication: TOOTH ABSCESS
     Dosage: 500/125 MG TWICE DAILY, UNKNOWN
  2. WARFARIN (WARFARIN) [Suspect]
     Indication: ANTICOAGULANT THERAPY
     Dosage: 2 MG ON MONDAY, WEDNESDAY AND FRIDAY,UNKNOW
  3. ALBUTEROL (SALBUTAMOL) [Concomitant]
  4. TRAZODONE (TRAZODONE) [Concomitant]
  5. CHLORDIAZEPOXINE (CHLORDIAZEPOXINE) [Concomitant]
  6. VICODIN ES (VICODIN) [Concomitant]

REACTIONS (6)
  - Haematuria [None]
  - Contusion [None]
  - International normalised ratio increased [None]
  - Post procedural haemorrhage [None]
  - Toxicity to various agents [None]
  - Drug interaction [None]
